FAERS Safety Report 6762381-3 (Version None)
Quarter: 2010Q2

REPORT INFORMATION
  Report Type: 
  Country: None (occurrence: None)
  Receive Date: 20100609
  Receipt Date: 20100601
  Transmission Date: 20101027
  Serious: Yes (Hospitalization, Other)
  Sender: FDA-Public Use
  Company Number: US-ROCHE-703108

PATIENT
  Sex: Female
  Weight: 50.8 kg

DRUGS (1)
  1. CAPECITABINE [Suspect]
     Dosage: DOSE AND FREQUENCY: 500MG BID X 14 DAYS
     Route: 048
     Dates: start: 20100415, end: 20100529

REACTIONS (5)
  - ASTHENIA [None]
  - DECREASED APPETITE [None]
  - DEHYDRATION [None]
  - DEPRESSED LEVEL OF CONSCIOUSNESS [None]
  - DIARRHOEA [None]
